FAERS Safety Report 6800468-7 (Version None)
Quarter: 2010Q2

REPORT INFORMATION
  Report Type: 
  Country: None (occurrence: None)
  Receive Date: 20100629
  Receipt Date: 20100617
  Transmission Date: 20101027
  Serious: No
  Sender: FDA-Public Use
  Company Number: US-BIOGENIDEC-2010BI021043

PATIENT
  Age: 39 Year
  Sex: Female

DRUGS (3)
  1. TYSABRI [Suspect]
     Indication: MULTIPLE SCLEROSIS
     Route: 042
     Dates: start: 20100121, end: 20100508
  2. CYCLOBENZAPRINE [Concomitant]
  3. NAPROXIN [Concomitant]

REACTIONS (10)
  - ABDOMINAL DISTENSION [None]
  - BALANCE DISORDER [None]
  - CONTUSION [None]
  - EYE MOVEMENT DISORDER [None]
  - FLUID RETENTION [None]
  - HEADACHE [None]
  - MUSCLE SPASMS [None]
  - MYALGIA [None]
  - SKIN LACERATION [None]
  - SOMNOLENCE [None]
